FAERS Safety Report 7307194-9 (Version None)
Quarter: 2011Q1

REPORT INFORMATION
  Report Type: 
  Country: None (occurrence: None)
  Receive Date: 20110120
  Receipt Date: 20100913
  Transmission Date: 20110831
  Serious: Yes (Life-Threatening, Hospitalization, Disabling)
  Sender: FDA-Public Use
  Company Number: WAES 1009USA03291

PATIENT
  Age: 78 Year
  Sex: Female

DRUGS (11)
  1. DEPAKOTE [Concomitant]
  2. NORVASC [Concomitant]
  3. INVANZ [Suspect]
     Indication: URINARY TRACT INFECTION
     Dosage: 1 GM/DAILY/IV
     Route: 042
  4. ZOLOFT [Concomitant]
  5. METFORMIN [Concomitant]
  6. TRILEPTAL [Concomitant]
  7. AMLODIPINE [Concomitant]
  8. AVAPRO [Concomitant]
  9. VALIUM [Concomitant]
  10. CLONIDINE [Concomitant]
  11. WARFARIN [Concomitant]

REACTIONS (1)
  - CONVULSION [None]
